FAERS Safety Report 9472121 (Version 1)
Quarter: 2013Q3

REPORT INFORMATION
  Report Type: Spontaneous
  Country: US (occurrence: US)
  Receive Date: 20130823
  Receipt Date: 20130823
  Transmission Date: 20140515
  Serious: Yes (Hospitalization, Disabling, Other)
  Sender: FDA-Public Use
  Company Number: US-JNJFOC-20130805528

PATIENT
  Age: 33 Year
  Sex: Female
  Weight: 66 kg

DRUGS (9)
  1. TYLENOL UNSPECIFIED [Suspect]
     Route: 065
  2. TYLENOL UNSPECIFIED [Suspect]
     Indication: PRODUCT USED FOR UNKNOWN INDICATION
     Route: 065
  3. REBIF [Suspect]
     Indication: MULTIPLE SCLEROSIS
     Route: 058
     Dates: end: 20100705
  4. REBIF [Suspect]
     Indication: MULTIPLE SCLEROSIS
     Route: 058
     Dates: start: 20110616
  5. REBIF [Suspect]
     Indication: MULTIPLE SCLEROSIS
     Dosage: 44MCG 3IN1
     Route: 058
     Dates: start: 20090814
  6. ALEVE [Suspect]
     Indication: PREMEDICATION
     Route: 065
     Dates: start: 2009, end: 201007
  7. AZITHROMYCIN [Suspect]
     Indication: PRODUCT USED FOR UNKNOWN INDICATION
     Route: 065
  8. BIRTH CONTROL PILL [Concomitant]
     Indication: CONTRACEPTION
     Route: 065
     Dates: end: 20100708
  9. VITAMIN [Concomitant]
     Indication: NUTRITIONAL SUPPLEMENTATION
     Route: 065

REACTIONS (8)
  - Hepatic failure [Recovering/Resolving]
  - Multiple sclerosis [Not Recovered/Not Resolved]
  - Hypotension [Unknown]
  - Injection site erythema [Not Recovered/Not Resolved]
  - Menorrhagia [Recovering/Resolving]
  - Bedridden [Recovered/Resolved]
  - Hepatic steatosis [Unknown]
  - Injection site bruising [Not Recovered/Not Resolved]
